FAERS Safety Report 25725691 (Version 2)
Quarter: 2025Q3

REPORT INFORMATION
  Report Type: Spontaneous
  Country: JP (occurrence: JP)
  Receive Date: 20250826
  Receipt Date: 20250912
  Transmission Date: 20251021
  Serious: Yes (Other)
  Sender: MERCK SHARP & DOHME LLC
  Company Number: JP-009507513-2322496

PATIENT
  Sex: Male

DRUGS (1)
  1. BELSOMRA [Suspect]
     Active Substance: SUVOREXANT
     Indication: Insomnia
     Route: 048
     Dates: start: 20250816

REACTIONS (2)
  - Urinary retention [Not Recovered/Not Resolved]
  - Oedema peripheral [Not Recovered/Not Resolved]

NARRATIVE: CASE EVENT DATE: 20250801
